FAERS Safety Report 17410842 (Version 1)
Quarter: 2020Q1

REPORT INFORMATION
  Report Type: Spontaneous
  Country: US (occurrence: US)
  Receive Date: 20200212
  Receipt Date: 20200212
  Transmission Date: 20200409
  Serious: Yes (Hospitalization)
  Sender: FDA-Public Use
  Company Number: US-PROCTER_AND_GAMBLE-GS20014240

PATIENT
  Sex: Female

DRUGS (4)
  1. AMITIZA [Suspect]
     Active Substance: LUBIPROSTONE
     Dosage: UNK, 2 /DAY
     Route: 048
  2. MIRALAX [Suspect]
     Active Substance: POLYETHYLENE GLYCOL 3350
     Dosage: OCCASIONALLY
     Route: 048
  3. METAMUCIL [Suspect]
     Active Substance: PLANTAGO SEED
     Dosage: UNK, 3 /DAY
     Route: 048
  4. STOOL SOFTENER (DOCUSATE) [Suspect]
     Active Substance: DOCUSATE
     Dosage: UNK, 2 /DAY
     Route: 048

REACTIONS (2)
  - Therapeutic product effect incomplete [Not Recovered/Not Resolved]
  - Intestinal obstruction [Recovered/Resolved]
